FAERS Safety Report 7364932-7 (Version None)
Quarter: 2011Q1

REPORT INFORMATION
  Report Type: 
  Country: None (occurrence: None)
  Receive Date: 20110321
  Receipt Date: 20110315
  Transmission Date: 20110831
  Serious: Yes (Life-Threatening)
  Sender: FDA-Public Use
  Company Number: FR-ASTRAZENECA-2011SE15021

PATIENT
  Sex: Male

DRUGS (9)
  1. DIPRIVAN [Suspect]
     Route: 042
     Dates: start: 20110124, end: 20110124
  2. KETAMINE HCL [Suspect]
     Route: 042
     Dates: start: 20110124, end: 20110124
  3. NIMBEX [Suspect]
     Route: 042
     Dates: start: 20110124, end: 20110124
  4. RAMIPRIL [Concomitant]
  5. SUCCINYLCHOLINE CHLORIDE [Suspect]
     Route: 042
     Dates: start: 20110124, end: 20110124
  6. SUFENTANIL CITRATE [Suspect]
     Route: 042
     Dates: start: 20110124, end: 20110124
  7. ATENOLOL [Concomitant]
  8. HYPNOMIDATE [Suspect]
     Route: 042
     Dates: start: 20110124, end: 20110124
  9. PROCORALAN [Concomitant]

REACTIONS (5)
  - CIRCULATORY COLLAPSE [None]
  - RASH [None]
  - BRONCHOSPASM [None]
  - OXYGEN SATURATION DECREASED [None]
  - SHOCK [None]
